FAERS Safety Report 15544807 (Version 3)
Quarter: 2018Q4

REPORT INFORMATION
  Report Type: Report from Study
  Country: GB (occurrence: GB)
  Receive Date: 20181024
  Receipt Date: 20181225
  Transmission Date: 20190205
  Serious: Yes (Hospitalization)
  Sender: FDA-Public Use
  Company Number: GB-ROCHE-2172672

PATIENT
  Sex: Female

DRUGS (1)
  1. ROACTEMRA [Suspect]
     Active Substance: TOCILIZUMAB
     Indication: RHEUMATOID ARTHRITIS
     Route: 058
     Dates: start: 20160930, end: 201808

REACTIONS (7)
  - Dyspnoea [Unknown]
  - Malaise [Unknown]
  - Alopecia [Unknown]
  - Joint swelling [Unknown]
  - Heart injury [Unknown]
  - Musculoskeletal pain [Unknown]
  - Peripheral swelling [Unknown]
